FAERS Safety Report 21082362 (Version 1)
Quarter: 2022Q3

REPORT INFORMATION
  Report Type: Spontaneous
  Country: US (occurrence: US)
  Receive Date: 20220714
  Receipt Date: 20220714
  Transmission Date: 20221026
  Serious: No
  Sender: FDA-Public Use
  Company Number: US-PFIZER INC-202200948820

PATIENT
  Age: 68 Year
  Sex: Male

DRUGS (1)
  1. PAXLOVID [Suspect]
     Active Substance: NIRMATRELVIR\RITONAVIR
     Indication: COVID-19 treatment
     Dosage: UNK
     Dates: start: 20220709

REACTIONS (3)
  - Intentional product misuse [Unknown]
  - Frustration tolerance decreased [Unknown]
  - Mood altered [Unknown]

NARRATIVE: CASE EVENT DATE: 20220701
